FAERS Safety Report 24526886 (Version 1)
Quarter: 2024Q4

REPORT INFORMATION
  Report Type: Spontaneous
  Country: FR (occurrence: FR)
  Receive Date: 20241021
  Receipt Date: 20241021
  Transmission Date: 20250114
  Serious: No
  Sender: ROCHE
  Company Number: FR-ROCHE-3555156

PATIENT
  Age: 81 Year
  Sex: Female
  Weight: 68.5 kg

DRUGS (6)
  1. ZELBORAF [Suspect]
     Active Substance: VEMURAFENIB
     Indication: Hairy cell leukaemia
     Dosage: 4 TABLETS
     Route: 048
  2. RITUXIMAB [Suspect]
     Active Substance: RITUXIMAB
     Indication: Hairy cell leukaemia
     Route: 065
  3. CLADRIBINE [Concomitant]
     Active Substance: CLADRIBINE
     Dates: start: 201805
  4. NIPENT [Concomitant]
     Active Substance: PENTOSTATIN
     Dates: start: 20240219
  5. NIPENT [Concomitant]
     Active Substance: PENTOSTATIN
     Dates: start: 20240304
  6. NIPENT [Concomitant]
     Active Substance: PENTOSTATIN
     Dates: start: 20240318

REACTIONS (2)
  - Off label use [Unknown]
  - No adverse event [Unknown]
